FAERS Safety Report 8476558 (Version 9)
Quarter: 2013Q2

REPORT INFORMATION
  Report Type: Report from Study
  Country: US (occurrence: US)
  Receive Date: 20120326
  Receipt Date: 20130507
  Transmission Date: 20140414
  Serious: Yes (Hospitalization, Other)
  Sender: FDA-Public Use
  Company Number: US-ACTELION-A-US2012-62789

PATIENT
  Age: 55 Year
  Sex: Female

DRUGS (7)
  1. VELETRI [Suspect]
     Indication: PULMONARY ARTERIAL HYPERTENSION
     Dosage: 54 NG/KG, PER MIN
     Route: 042
     Dates: start: 20110901
  2. VELETRI [Suspect]
     Dosage: 50 UNK, UNK
     Route: 042
     Dates: start: 20110818
  3. VELETRI [Suspect]
     Dosage: 1 NG/KG, PER MIN
     Route: 042
     Dates: start: 20110831
  4. VELETRI [Suspect]
     Dosage: 35 NG/KG, PER MIN
     Route: 042
  5. TRACLEER [Suspect]
     Indication: PULMONARY ARTERIAL HYPERTENSION
     Dosage: 125 MG, BID
     Route: 048
  6. SILDENAFIL [Concomitant]
  7. COUMADIN [Concomitant]

REACTIONS (12)
  - Device related infection [Recovered/Resolved]
  - Catheter site infection [Unknown]
  - Right ventricular failure [Recovering/Resolving]
  - Heart rate abnormal [Recovering/Resolving]
  - Blood pressure increased [Recovering/Resolving]
  - Breast cancer [Unknown]
  - Mastectomy [Unknown]
  - Fluid retention [Recovering/Resolving]
  - Pneumonia [Unknown]
  - Syncope [Unknown]
  - Paracentesis [Recovering/Resolving]
  - Chemotherapy [Unknown]
